FAERS Safety Report 10259947 (Version 1)
Quarter: 2014Q2

REPORT INFORMATION
  Report Type: Spontaneous
  Country: GB (occurrence: GB)
  Receive Date: 20140625
  Receipt Date: 20140625
  Transmission Date: 20141212
  Serious: Yes (Other)
  Sender: FDA-Public Use
  Company Number: GB-BAYER-2014-092991

PATIENT
  Sex: Female

DRUGS (1)
  1. CANESTEN COMBI 500MG PESSARY + 2% CREAM [Suspect]
     Indication: VULVOVAGINAL CANDIDIASIS
     Dosage: UNK
     Route: 067
     Dates: start: 20140616

REACTIONS (1)
  - Genital haemorrhage [None]
